FAERS Safety Report 4660542-0 (Version None)
Quarter: 2005Q2

REPORT INFORMATION
  Report Type: 
  Country: None (occurrence: None)
  Receive Date: 20050427
  Receipt Date: 20050111
  Transmission Date: 20051028
  Serious: No
  Sender: FDA-Public Use
  Company Number: 211006

PATIENT
  Age: 57 Year
  Sex: Female

DRUGS (12)
  1. XOLAIR [Suspect]
     Indication: ASTHMA
     Dosage: 375 MG, Q2W, SUBCUTANEOUS
     Route: 058
     Dates: start: 20041102
  2. GENTAMICIN SULFATE [Suspect]
     Dosage: BID, NASAL
     Route: 045
  3. ADVAIR (SALMETEROL XINAFOATE, FLUTICASONE PROPIONATE) [Concomitant]
  4. ZYRTEC [Concomitant]
  5. SINGULAIR [Concomitant]
  6. NASACORT AQ (TRIAMCINOLONE ACETATE) [Concomitant]
  7. GUAIFENESIN (GUAIFENESIN) [Concomitant]
  8. HUMIBID LA (GUAIFENESIN) [Concomitant]
  9. CIPROFLOXACIN [Concomitant]
  10. PREDNISONE [Concomitant]
  11. TOBI [Concomitant]
  12. FLOVENT [Concomitant]

REACTIONS (1)
  - RASH [None]
